FAERS Safety Report 6849971-4 (Version None)
Quarter: 2010Q3

REPORT INFORMATION
  Report Type: 
  Country: None (occurrence: None)
  Receive Date: 20100716
  Receipt Date: 20071009
  Transmission Date: 20110219
  Serious: No
  Sender: FDA-Public Use
  Company Number: US-PFIZER INC-2007085512

PATIENT
  Sex: Female
  Weight: 65.909 kg

DRUGS (1)
  1. CHANTIX [Suspect]
     Indication: SMOKING CESSATION THERAPY
     Dates: start: 20070907

REACTIONS (5)
  - DISTURBANCE IN ATTENTION [None]
  - INFLUENZA LIKE ILLNESS [None]
  - MOOD ALTERED [None]
  - NAUSEA [None]
  - PAIN [None]
